FAERS Safety Report 12631237 (Version 2)
Quarter: 2016Q3

REPORT INFORMATION
  Report Type: Spontaneous
  Country: US (occurrence: US)
  Receive Date: 20160808
  Receipt Date: 20160808
  Transmission Date: 20161109
  Serious: No
  Sender: FDA-Public Use
  Company Number: US-BEH-2015052957

PATIENT
  Age: 74 Year
  Sex: Female
  Weight: 49.4 kg

DRUGS (14)
  1. HIZENTRA [Suspect]
     Active Substance: HUMAN IMMUNOGLOBULIN G
     Indication: IMMUNODEFICIENCY COMMON VARIABLE
     Dosage: 2 GM 10 ML VIAL
     Route: 058
     Dates: start: 20150731
  2. EPIPEN [Concomitant]
     Active Substance: EPINEPHRINE
     Indication: ANAPHYLACTIC REACTION
  3. DIPHENHYDRAMINE. [Concomitant]
     Active Substance: DIPHENHYDRAMINE
     Indication: ANAPHYLACTIC REACTION
  4. HIZENTRA [Suspect]
     Active Substance: HUMAN IMMUNOGLOBULIN G
     Dosage: 1 GM 5 ML VIAL
     Route: 058
     Dates: start: 20150731
  5. CYMBALTA [Concomitant]
     Active Substance: DULOXETINE HYDROCHLORIDE
  6. ASMANEX INHALER [Concomitant]
  7. QUINAPRIL. [Concomitant]
     Active Substance: QUINAPRIL
  8. TRIAMCINOLONE [Concomitant]
     Active Substance: TRIAMCINOLONE
  9. HIZENTRA [Suspect]
     Active Substance: HUMAN IMMUNOGLOBULIN G
     Dosage: 4 GM 20 ML VIAL
     Route: 058
     Dates: start: 20150731
  10. LIDOCAINE PRILOCAINE [Concomitant]
     Active Substance: LIDOCAINE\PRILOCAINE
  11. EVOXAC [Concomitant]
     Active Substance: CEVIMELINE HYDROCHLORIDE
  12. CELEBREX [Concomitant]
     Active Substance: CELECOXIB
  13. PREMARIN VAGINAL [Concomitant]
     Active Substance: ESTROGENS, CONJUGATED
  14. LEVOTHYROXINE. [Concomitant]
     Active Substance: LEVOTHYROXINE

REACTIONS (4)
  - Dehydration [Unknown]
  - Vomiting [Not Recovered/Not Resolved]
  - Abdominal pain [Not Recovered/Not Resolved]
  - Nausea [Not Recovered/Not Resolved]

NARRATIVE: CASE EVENT DATE: 20150731
